FAERS Safety Report 9629899 (Version 1)
Quarter: 2013Q4

REPORT INFORMATION
  Report Type: Spontaneous
  Country: US (occurrence: US)
  Receive Date: 20131017
  Receipt Date: 20131017
  Transmission Date: 20140711
  Serious: Yes (Other)
  Sender: FDA-Public Use
  Company Number: US-AMGEN-USASP2013073002

PATIENT
  Age: 63 Year
  Sex: Female

DRUGS (1)
  1. ENBREL [Suspect]
     Indication: PSORIATIC ARTHROPATHY
     Dosage: 50 MG, QWK
     Route: 065
     Dates: start: 20090601

REACTIONS (5)
  - Abnormal loss of weight [Recovered/Resolved]
  - Clostridium difficile infection [Recovered/Resolved]
  - Abdominal discomfort [Recovered/Resolved]
  - Presyncope [Recovered/Resolved]
  - Bronchitis [Recovered/Resolved]
